FAERS Safety Report 10219925 (Version 2)
Quarter: 2014Q2

REPORT INFORMATION
  Report Type: Spontaneous
  Country: JP (occurrence: JP)
  Receive Date: 20140605
  Receipt Date: 20140611
  Transmission Date: 20141212
  Serious: No
  Sender: FDA-Public Use
  Company Number: JP-ELI_LILLY_AND_COMPANY-JP201405009708

PATIENT
  Age: 44 Year
  Sex: Male

DRUGS (10)
  1. FORTEO [Suspect]
     Indication: OSTEOPOROSIS
     Dosage: UNK
     Route: 058
     Dates: start: 20140502
  2. JANUVIA [Concomitant]
     Dosage: UNK
  3. CELECOX [Concomitant]
     Dosage: UNK
  4. METHYCOBAL [Concomitant]
     Dosage: UNK
  5. HIRNAMIN                           /00038601/ [Concomitant]
     Dosage: UNK
  6. NOVORAPID [Concomitant]
     Dosage: UNK
  7. LANTUS [Concomitant]
     Dosage: UNK
  8. LYRICA [Concomitant]
     Dosage: UNK
  9. RISPERDAL [Concomitant]
  10. BENZALIN                           /00036201/ [Concomitant]

REACTIONS (1)
  - Somnolence [Recovered/Resolved]
